FAERS Safety Report 4281895-1 (Version None)
Quarter: 2004Q1

REPORT INFORMATION
  Report Type: 
  Country: None (occurrence: None)
  Receive Date: 20040112
  Receipt Date: 20031024
  Transmission Date: 20041129
  Serious: No
  Sender: FDA-Public Use
  Company Number: PHEH2003US09858

PATIENT
  Sex: Female

DRUGS (1)
  1. ELIDEL [Suspect]

REACTIONS (2)
  - LYMPHADENOPATHY [None]
  - RASH [None]
